FAERS Safety Report 23361716 (Version 1)
Quarter: 2024Q1

REPORT INFORMATION
  Report Type: Spontaneous
  Country: US (occurrence: None)
  Receive Date: 20240102
  Receipt Date: 20240102
  Transmission Date: 20240410
  Serious: No
  Sender: FDA-Public Use
  Company Number: None

PATIENT
  Age: 68 Year
  Sex: 0

DRUGS (3)
  1. RINVOQ [Suspect]
     Active Substance: UPADACITINIB
  2. VALSARTAN [Concomitant]
     Active Substance: VALSARTAN
  3. AMLODIPINE [Concomitant]
     Active Substance: AMLODIPINE BESYLATE

REACTIONS (5)
  - Contusion [None]
  - Haemorrhage [None]
  - COVID-19 [None]
  - Respiratory tract infection [None]
  - Left ventricular failure [None]

NARRATIVE: CASE EVENT DATE: 20240102
